FAERS Safety Report 6778774-4 (Version None)
Quarter: 2010Q2

REPORT INFORMATION
  Report Type: 
  Country: None (occurrence: None)
  Receive Date: 20100618
  Receipt Date: 20100609
  Transmission Date: 20101027
  Serious: Yes (Other)
  Sender: FDA-Public Use
  Company Number: US-BAYER-201028751GPV

PATIENT

DRUGS (4)
  1. SORAFENIB [Suspect]
     Indication: PANCREATIC CARCINOMA
     Dosage: TOTAL DAILY DOSE: 400 MG
     Route: 048
  2. OXALIPLATIN [Suspect]
     Indication: PANCREATIC CARCINOMA
     Dosage: DAYS 1 AND 15 OF A 28-DAY CYCLE
     Route: 042
  3. OXALIPLATIN [Suspect]
     Route: 042
  4. CAPECITABINE [Suspect]
     Indication: PANCREATIC CARCINOMA
     Dosage: EVERY 8 HOURS FOR SIX DOSES STARTING ON DAYS 1 AND 15 OF A 28-DAY CYCLE
     Route: 048

REACTIONS (1)
  - PULMONARY EMBOLISM [None]
